FAERS Safety Report 8315457-3 (Version None)
Quarter: 2012Q2

REPORT INFORMATION
  Report Type: 
  Country: None (occurrence: None)
  Receive Date: 20120426
  Receipt Date: 20120423
  Transmission Date: 20120825
  Serious: Yes (Death, Hospitalization, Other)
  Sender: FDA-Public Use
  Company Number: FR-PFIZER INC-2012099290

PATIENT
  Age: 81 Year
  Sex: Female

DRUGS (9)
  1. ATORVASTATIN [Suspect]
     Indication: DYSLIPIDAEMIA
     Dosage: 10 MG, 1X/DAY
     Route: 048
     Dates: end: 20120216
  2. FUROSEMIDE [Concomitant]
     Dosage: UNK
     Route: 042
  3. FOSINOPRIL SODIUM [Suspect]
     Indication: HYPERTENSION
     Dosage: 20 MG, 1X/DAY
     Route: 048
     Dates: end: 20120216
  4. PANTOPRAZOLE [Concomitant]
     Dosage: UNK
     Route: 042
  5. RISPERIDONE [Suspect]
     Dosage: 1 MG, 1X/DAY
     Route: 048
     Dates: end: 20120216
  6. PREVISCAN [Suspect]
     Dosage: UNK
     Route: 048
     Dates: end: 20120215
  7. VALPROATE SODIUM [Suspect]
     Indication: EPILEPSY
     Dosage: 500 MG, 2X/DAY
     Route: 048
     Dates: start: 19500101, end: 20120216
  8. PANTOPRAZOLE [Concomitant]
     Dosage: 40 MG, UNK
     Route: 048
     Dates: end: 20120216
  9. FUROSEMIDE [Concomitant]
     Indication: HYPERTENSION
     Dosage: 40 MG, 1X/DAY
     Route: 048
     Dates: end: 20120216

REACTIONS (5)
  - METABOLIC ENCEPHALOPATHY [None]
  - HYPERAMMONAEMIA [None]
  - LEUKOPENIA [None]
  - CARDIAC ARREST [None]
  - THROMBOCYTOPENIA [None]
